FAERS Safety Report 7294254-4 (Version None)
Quarter: 2011Q1

REPORT INFORMATION
  Report Type: 
  Country: None (occurrence: None)
  Receive Date: 20110215
  Receipt Date: 20110201
  Transmission Date: 20110831
  Serious: Yes (Other)
  Sender: FDA-Public Use
  Company Number: US-GENENTECH-313614

PATIENT
  Age: 72 Year
  Sex: Male
  Weight: 59.41 kg

DRUGS (5)
  1. RITUXAN [Suspect]
     Indication: PRODUCT USED FOR UNKNOWN INDICATION
  2. ZEVALIN [Suspect]
     Indication: DIFFUSE LARGE B-CELL LYMPHOMA
     Dosage: UNK
     Dates: start: 20070501, end: 20070501
  3. ZEVALIN [Suspect]
     Indication: DIFFUSE LARGE B-CELL LYMPHOMA
     Dosage: UNK
     Dates: start: 20070601, end: 20070601
  4. NEULASTA [Concomitant]
     Indication: PRODUCT USED FOR UNKNOWN INDICATION
  5. PEGFILGRASTIM [Concomitant]
     Indication: PRODUCT USED FOR UNKNOWN INDICATION

REACTIONS (21)
  - AURICULAR SWELLING [None]
  - BLOOD PRESSURE DIASTOLIC DECREASED [None]
  - HEART RATE INCREASED [None]
  - CONDITION AGGRAVATED [None]
  - HYPOTONIA [None]
  - GAIT DISTURBANCE [None]
  - MALAISE [None]
  - PERIORBITAL OEDEMA [None]
  - SKIN LESION [None]
  - ANAEMIA [None]
  - GINGIVAL HYPERTROPHY [None]
  - OSTEOARTHRITIS [None]
  - LYMPHOMA [None]
  - FATIGUE [None]
  - LYMPHADENOPATHY [None]
  - PURPURA SENILE [None]
  - THROMBOCYTOPENIA [None]
  - TONSILLAR HYPERTROPHY [None]
  - ECCHYMOSIS [None]
  - HYPOACUSIS [None]
  - METASTATIC NEOPLASM [None]
